FAERS Safety Report 23634109 (Version 2)
Quarter: 2024Q2

REPORT INFORMATION
  Report Type: Spontaneous
  Country: DE (occurrence: DE)
  Receive Date: 20240314
  Receipt Date: 20240627
  Transmission Date: 20240716
  Serious: Yes (Other)
  Sender: FDA-Public Use
  Company Number: DE-BoehringerIngelheim-2024-BI-014802

PATIENT
  Age: 73 Year
  Sex: Female
  Weight: 58 kg

DRUGS (10)
  1. OFEV [Suspect]
     Active Substance: NINTEDANIB
     Indication: Pulmonary fibrosis
     Dosage: 1-0-1
     Dates: start: 202202, end: 20240313
  2. OFEV [Suspect]
     Active Substance: NINTEDANIB
     Indication: Disease progression
     Route: 048
  3. THEOPHYLLINE ANHYDROUS [Concomitant]
     Active Substance: THEOPHYLLINE ANHYDROUS
     Indication: Bronchiectasis
     Dosage: 1-0-0
     Route: 048
  4. THEOPHYLLINE ANHYDROUS [Concomitant]
     Active Substance: THEOPHYLLINE ANHYDROUS
     Dosage: 0-0-1
     Route: 048
  5. FORADIL [Concomitant]
     Active Substance: FORMOTEROL FUMARATE
     Indication: Bronchiectasis
     Dosage: 1-0-1
  6. Foster 100/6mg [Concomitant]
     Indication: Antasthmatic drug level
     Dosage: DAILY DOSE:  200/12 MG STRENGTH 100/6MG
  7. METHYLPREDNISOLONE [Concomitant]
     Active Substance: METHYLPREDNISOLONE
     Indication: Bronchiectasis
     Dosage: 1-0-0
     Route: 048
  8. MAGNESIUM [Concomitant]
     Active Substance: MAGNESIUM
     Indication: Product used for unknown indication
     Dosage: 1-0-0
  9. Cortison Spray [Concomitant]
     Indication: Product used for unknown indication
  10. SIMVASTATIN [Concomitant]
     Active Substance: SIMVASTATIN
     Indication: Product used for unknown indication

REACTIONS (4)
  - Vertebrobasilar artery dissection [Recovered/Resolved]
  - Haemorrhage intracranial [Unknown]
  - Lateral medullary syndrome [Recovered/Resolved]
  - Spinal osteoarthritis [Unknown]

NARRATIVE: CASE EVENT DATE: 20240207
